FAERS Safety Report 7261340-4 (Version None)
Quarter: 2011Q1

REPORT INFORMATION
  Report Type: 
  Country: None (occurrence: None)
  Receive Date: 20110130
  Receipt Date: 20101007
  Transmission Date: 20110831
  Serious: No
  Sender: FDA-Public Use
  Company Number: US-ABBOTT-10P-163-0677311-00

PATIENT
  Sex: Female
  Weight: 59.02 kg

DRUGS (3)
  1. IMURAN [Concomitant]
     Indication: CROHN'S DISEASE
  2. HUMIRA [Suspect]
     Indication: CROHN'S DISEASE
     Dates: start: 20070101
  3. PENTASA [Concomitant]
     Indication: CROHN'S DISEASE

REACTIONS (1)
  - INJECTION SITE PAIN [None]
